FAERS Safety Report 11088226 (Version 1)
Quarter: 2015Q2

REPORT INFORMATION
  Report Type: Spontaneous
  Country: IT (occurrence: IT)
  Receive Date: 20150504
  Receipt Date: 20150504
  Transmission Date: 20150821
  Serious: Yes (Hospitalization)
  Sender: FDA-Public Use
  Company Number: IT-PFIZER INC-2015147120

PATIENT
  Age: 93 Year
  Sex: Female

DRUGS (4)
  1. VENORUTON /00027704/ [Concomitant]
     Route: 048
  2. NORVASC [Suspect]
     Active Substance: AMLODIPINE BESYLATE
     Indication: HYPERTENSION
     Dosage: 1 DF, DAILY
     Route: 048
     Dates: start: 20150305, end: 20150315
  3. NORMIX [Concomitant]
     Active Substance: RIFAXIMIN
     Route: 048
  4. TRIATEC HCT [Suspect]
     Active Substance: HYDROCHLOROTHIAZIDE\RAMIPRIL
     Indication: HYPERTENSION
     Dosage: 1 DF, DAILY
     Route: 048
     Dates: start: 20150305, end: 20150315

REACTIONS (6)
  - Restlessness [Unknown]
  - Tremor [Unknown]
  - Feeling cold [Unknown]
  - Hyponatraemic syndrome [Unknown]
  - Headache [Unknown]
  - Peripheral swelling [Unknown]

NARRATIVE: CASE EVENT DATE: 20150315
